FAERS Safety Report 10013957 (Version 3)
Quarter: 2014Q2

REPORT INFORMATION
  Report Type: Report from Study
  Country: CN (occurrence: CN)
  Receive Date: 20140316
  Receipt Date: 20140401
  Transmission Date: 20141212
  Serious: Yes (Other)
  Sender: FDA-Public Use
  Company Number: CN-BRISTOL-MYERS SQUIBB COMPANY-19850908

PATIENT
  Age: 25 Year
  Sex: Male

DRUGS (1)
  1. ENTECAVIR [Suspect]
     Indication: HEPATITIS B
     Route: 048
     Dates: start: 20130425

REACTIONS (4)
  - Abortion induced [Unknown]
  - Placental disorder [Unknown]
  - Exposure via father [Unknown]
  - Pregnancy [Recovered/Resolved]
